FAERS Safety Report 10651771 (Version 1)
Quarter: 2014Q4

REPORT INFORMATION
  Report Type: Spontaneous
  Country: US (occurrence: None)
  Receive Date: 20141212
  Receipt Date: 20141212
  Transmission Date: 20150529
  Serious: Yes (Other)
  Sender: FDA-Public Use
  Company Number: None

PATIENT
  Age: 58 Year
  Sex: Female
  Weight: 78.5 kg

DRUGS (6)
  1. VINCRISTINE SO4 [Suspect]
     Active Substance: VINCRISTINE SULFATE
     Indication: LYMPHOMA
     Dosage: EVERY 21 DAYS
     Dates: start: 20141113
  2. CYCLOPHOSPHAMIDE. [Suspect]
     Active Substance: CYCLOPHOSPHAMIDE
     Indication: LYMPHOMA
     Dosage: EVERY 21 DAYS
     Dates: start: 20141113
  3. OMEPRAZOLE. [Concomitant]
     Active Substance: OMEPRAZOLE
  4. DOXORUBICIN HCL [Suspect]
     Active Substance: DOXORUBICIN HYDROCHLORIDE
     Indication: LYMPHOMA
     Dosage: EVERY 21 DAYS
     Dates: start: 20141113
  5. PREDNISONE. [Suspect]
     Active Substance: PREDNISONE
     Indication: LYMPHOMA
     Dosage: EVERY 21 DAYS
     Dates: start: 20141113
  6. RITUXIMAB [Suspect]
     Active Substance: RITUXIMAB
     Indication: LYMPHOMA
     Dosage: EVERY 21 DAYS
     Dates: start: 20141113

REACTIONS (3)
  - Febrile neutropenia [None]
  - Staphylococcal infection [None]
  - Blood culture positive [None]

NARRATIVE: CASE EVENT DATE: 20141127
